FAERS Safety Report 7413918-2 (Version None)
Quarter: 2011Q2

REPORT INFORMATION
  Report Type: 
  Country: None (occurrence: None)
  Receive Date: 20110414
  Receipt Date: 20110408
  Transmission Date: 20111010
  Serious: Yes (Hospitalization)
  Sender: FDA-Public Use
  Company Number: US-BIOGENIDEC-2011BI011307

PATIENT
  Age: 70 Year
  Sex: Female

DRUGS (2)
  1. AVONEX [Suspect]
     Indication: MULTIPLE SCLEROSIS
     Route: 030
     Dates: start: 20070609
  2. IV STEROID (NOS) [Concomitant]
     Indication: MULTIPLE SCLEROSIS
     Route: 042

REACTIONS (4)
  - VEIN DISORDER [None]
  - ARTERIOSCLEROSIS [None]
  - MULTIPLE SCLEROSIS RELAPSE [None]
  - INSOMNIA [None]
